FAERS Safety Report 12788014 (Version 1)
Quarter: 2016Q3

REPORT INFORMATION
  Report Type: Spontaneous
  Country: US (occurrence: US)
  Receive Date: 20160928
  Receipt Date: 20160928
  Transmission Date: 20161109
  Serious: No
  Sender: FDA-Public Use
  Company Number: US-TEVA-677633USA

PATIENT
  Sex: Female

DRUGS (1)
  1. TRI-LO-SPRINTEC [Suspect]
     Active Substance: ETHINYL ESTRADIOL\NORGESTIMATE

REACTIONS (5)
  - Muscle spasms [Unknown]
  - Metrorrhagia [Unknown]
  - Product substitution issue [Unknown]
  - Acne [Unknown]
  - Mood altered [Unknown]

NARRATIVE: CASE EVENT DATE: 2016
